FAERS Safety Report 6636624-0 (Version None)
Quarter: 2010Q1

REPORT INFORMATION
  Report Type: 
  Country: None (occurrence: None)
  Receive Date: 20100316
  Receipt Date: 20100309
  Transmission Date: 20100710
  Serious: Yes (Life-Threatening, Hospitalization)
  Sender: FDA-Public Use
  Company Number: JP-MERCK-1002USA00904

PATIENT
  Age: 57 Year
  Sex: Female

DRUGS (11)
  1. PEPCID [Suspect]
     Indication: GASTRITIS
     Route: 048
     Dates: end: 20100118
  2. ONEALFA [Suspect]
     Indication: OSTEOPOROSIS
     Route: 048
     Dates: end: 20100118
  3. ZOLOFT [Suspect]
     Indication: DEPRESSION
     Route: 048
     Dates: start: 20090908, end: 20100118
  4. DUROTEP [Concomitant]
     Indication: NEOPLASM MALIGNANT
     Route: 065
     Dates: end: 20010225
  5. MAGMITT [Concomitant]
     Indication: CONSTIPATION
     Route: 048
     Dates: end: 20100118
  6. VITAMIN A [Concomitant]
     Indication: HYPOVITAMINOSIS
     Route: 065
     Dates: start: 20090908, end: 20100118
  7. RISPERDAL [Concomitant]
     Indication: DEPRESSION
     Route: 048
     Dates: start: 20091030, end: 20100118
  8. MYSLEE [Concomitant]
     Indication: INSOMNIA
     Route: 065
     Dates: start: 20090926, end: 20100118
  9. MIRTAZAPINE [Concomitant]
     Indication: DEPRESSION
     Route: 065
     Dates: start: 20091023, end: 20100118
  10. CISPLATIN [Concomitant]
     Route: 065
     Dates: start: 20090707, end: 20090925
  11. ALIMTA [Concomitant]
     Route: 065
     Dates: start: 20090707, end: 20090925

REACTIONS (1)
  - LARYNGEAL OEDEMA [None]
